FAERS Safety Report 9153885 (Version 1)
Quarter: 2013Q1

REPORT INFORMATION
  Report Type: Spontaneous
  Country: US (occurrence: None)
  Receive Date: 20130207
  Receipt Date: 20130207
  Transmission Date: 20140127
  Serious: Yes (Death)
  Sender: FDA-Public Use
  Company Number: 2013010205

PATIENT
  Age: 31 Year
  Sex: Male

DRUGS (3)
  1. ZOLPIDEM (ZOLPIDEM) [Suspect]
     Route: 048
  2. ACETAMINOPHEN/HYDROCODONE [Suspect]
     Route: 048
  3. OXYCODONE (OXYCODONE) [Suspect]
     Route: 048

REACTIONS (2)
  - Intentional drug misuse [None]
  - Overdose [None]
